FAERS Safety Report 8837281 (Version 3)
Quarter: 2012Q4

REPORT INFORMATION
  Report Type: 
  Country: BW (occurrence: BW)
  Receive Date: 20121011
  Receipt Date: 20121214
  Transmission Date: 20130627
  Serious: Yes (Life-Threatening, Hospitalization, Other)
  Sender: FDA-Public Use
  Company Number: BW-009507513-1210BWA002181

PATIENT
  Age: 5 Month
  Sex: Male
  Weight: 5.7 kg

DRUGS (5)
  1. RALTEGRAVIR POTASSIUM [Suspect]
     Indication: HIV INFECTION
     Dosage: 2 ml, bid
     Route: 048
     Dates: start: 20120925, end: 20121002
  2. LAMIVUDINE [Concomitant]
     Dosage: UNK
  3. ZIDOVUDINE [Concomitant]
     Dosage: UNK
  4. KALETRA [Concomitant]
     Dosage: UNK
  5. SULFAMETHOXAZOLE (+) TRIMETHOPRIM [Concomitant]
     Indication: ANTIFUNGAL PROPHYLAXIS
     Dosage: UNK UNK, qd
     Route: 048
     Dates: start: 201207, end: 20121001

REACTIONS (3)
  - Rash erythematous [Recovered/Resolved]
  - Pneumocystis jiroveci pneumonia [Recovered/Resolved]
  - Blood bicarbonate decreased [Recovered/Resolved]
